FAERS Safety Report 19372999 (Version 1)
Quarter: 2021Q2

REPORT INFORMATION
  Report Type: Report from Study
  Country: TW (occurrence: TW)
  Receive Date: 20210604
  Receipt Date: 20210604
  Transmission Date: 20210717
  Serious: Yes (Other)
  Sender: FDA-Public Use
  Company Number: TW-ALS-000293

PATIENT
  Age: 28 Year
  Sex: Female

DRUGS (7)
  1. TOPIRAMATE. [Suspect]
     Active Substance: TOPIRAMATE
     Indication: OBESITY
     Route: 065
  2. PSEUDOEPHEDRINE. [Suspect]
     Active Substance: PSEUDOEPHEDRINE HYDROCHLORIDE
     Indication: OBESITY
     Route: 065
  3. METFORMIN [Suspect]
     Active Substance: METFORMIN HYDROCHLORIDE
     Indication: OBESITY
     Route: 065
  4. LIOTHYRONINE [Suspect]
     Active Substance: LIOTHYRONINE
     Indication: OBESITY
     Route: 065
  5. HYDROCHLOROTHIAZIDE. [Suspect]
     Active Substance: HYDROCHLOROTHIAZIDE
     Indication: OBESITY
     Route: 065
  6. FLUOXETINE [Suspect]
     Active Substance: FLUOXETINE HYDROCHLORIDE
     Indication: OBESITY
     Route: 065
  7. OXAZOLAM [Suspect]
     Active Substance: OXAZOLAM
     Indication: OBESITY
     Route: 065

REACTIONS (10)
  - Decreased appetite [Unknown]
  - Gene mutation [Unknown]
  - Product use in unapproved indication [Unknown]
  - Myopathy [Unknown]
  - Very long-chain acyl-coenzyme A dehydrogenase deficiency [Unknown]
  - Metabolic myopathy [Unknown]
  - Memory impairment [Unknown]
  - Muscle atrophy [Unknown]
  - Wheelchair user [Recovered/Resolved]
  - Hypophagia [Unknown]
